FAERS Safety Report 7041686-5 (Version None)
Quarter: 2010Q4

REPORT INFORMATION
  Report Type: 
  Country: None (occurrence: None)
  Receive Date: 20101013
  Receipt Date: 20100222
  Transmission Date: 20110411
  Serious: No
  Sender: FDA-Public Use
  Company Number: US-ASTRAZENECA-2010SE05262

PATIENT
  Age: 47 Year
  Sex: Male
  Weight: 181.4 kg

DRUGS (6)
  1. SYMBICORT [Suspect]
     Indication: BRONCHITIS
     Dosage: 640/4.5  MCG 2 PUFFS TWICE A DAY
     Route: 055
     Dates: start: 20100126
  2. PULMICORT [Concomitant]
     Route: 055
  3. ZITHROMAX [Concomitant]
     Route: 065
  4. ALBUTEROL [Concomitant]
     Route: 065
  5. ZITHROMAX [Concomitant]
     Route: 065
  6. IPATROPIUM BROMATE [Concomitant]
     Route: 065

REACTIONS (4)
  - BRONCHITIS [None]
  - COUGH [None]
  - HAEMOPTYSIS [None]
  - TREATMENT NONCOMPLIANCE [None]
